FAERS Safety Report 7450228-1 (Version None)
Quarter: 2011Q2

REPORT INFORMATION
  Report Type: 
  Country: None (occurrence: None)
  Receive Date: 20110422
  Receipt Date: 20110413
  Transmission Date: 20111010
  Serious: Yes (Death, Hospitalization)
  Sender: FDA-Public Use
  Company Number: CIP11000265

PATIENT
  Age: 86 Year
  Sex: Male

DRUGS (9)
  1. DONORMYL /00334102/ (DOXYLAMINE SUCCINATE) [Concomitant]
  2. FURADANTIN [Suspect]
     Indication: URINARY TRACT INFECTION
     Dosage: 100 MG THREE TIMES DAILY, ORAL
     Route: 048
     Dates: start: 20101122, end: 20101201
  3. PANTOPRAZOLE [Concomitant]
  4. KARDEGIC /00002703/ (ACETYLSALICYLATE LYSINE) [Concomitant]
  5. CALCIT-S (CALCITONIN, SALMON) [Concomitant]
  6. ACTONEL [Concomitant]
  7. TRIVASTAL /00397201/ (PIRIBEDIL) [Concomitant]
  8. MOVICOL	/01053601/ (MACROGOL, POTASSIUM CHLORIDE, SODIUM BICARBONATE, [Concomitant]
  9. ATACAND /013495021(CANDESARTAN CILEXETIL) [Concomitant]

REACTIONS (18)
  - BRAIN NATRIURETIC PEPTIDE INCREASED [None]
  - RASH [None]
  - PULMONARY FIBROSIS [None]
  - LEFT VENTRICULAR HYPERTROPHY [None]
  - SEPTIC SHOCK [None]
  - RALES [None]
  - SINUS TACHYCARDIA [None]
  - BLOOD GLUCOSE INCREASED [None]
  - ACUTE RESPIRATORY DISTRESS SYNDROME [None]
  - PSEUDOMONAS INFECTION [None]
  - HYPOXIA [None]
  - MECHANICAL VENTILATION COMPLICATION [None]
  - INTERSTITIAL LUNG DISEASE [None]
  - JUGULAR VEIN DISTENSION [None]
  - PLEURAL EFFUSION [None]
  - BLOOD LACTATE DEHYDROGENASE INCREASED [None]
  - NEUTROPHIL COUNT INCREASED [None]
  - LUNG DISORDER [None]
